FAERS Safety Report 20695676 (Version 1)
Quarter: 2022Q2

REPORT INFORMATION
  Report Type: Spontaneous
  Country: US (occurrence: None)
  Receive Date: 20220408
  Receipt Date: 20220408
  Transmission Date: 20220721
  Serious: Yes (Hospitalization)
  Sender: FDA-Public Use
  Company Number: None

PATIENT
  Age: 77 Year
  Sex: Male
  Weight: 56.7 kg

DRUGS (1)
  1. TOPIRAMATE [Suspect]
     Active Substance: TOPIRAMATE
     Indication: Headache
     Dosage: OTHER QUANTITY : 2 TABLET(S);?FREQUENCY : TWICE A DAY;?
     Route: 048
     Dates: start: 20220124, end: 20220302

REACTIONS (12)
  - Decreased appetite [None]
  - Amnesia [None]
  - Mental impairment [None]
  - Gait disturbance [None]
  - Coordination abnormal [None]
  - Insomnia [None]
  - Somnolence [None]
  - Dehydration [None]
  - Fall [None]
  - Electrolyte imbalance [None]
  - Hormone level abnormal [None]
  - Asthenia [None]

NARRATIVE: CASE EVENT DATE: 20220303
